FAERS Safety Report 16025345 (Version 2)
Quarter: 2019Q3

REPORT INFORMATION
  Report Type: Spontaneous
  Country: US (occurrence: US)
  Receive Date: 20190301
  Receipt Date: 20190924
  Transmission Date: 20191004
  Serious: No
  Sender: FDA-Public Use
  Company Number: US-BAUSCH-BL-2019-004934

PATIENT
  Sex: Male

DRUGS (6)
  1. HUMIRA [Suspect]
     Active Substance: ADALIMUMAB
     Indication: CROHN^S DISEASE
     Dosage: (40 MG/0.8 ML, DAY 1)
     Route: 058
     Dates: start: 20180726, end: 20180726
  2. HUMIRA [Suspect]
     Active Substance: ADALIMUMAB
     Dosage: (40 MG/0.8 ML, DAY 29)
     Route: 058
     Dates: start: 20180824, end: 2018
  3. HUMIRA [Suspect]
     Active Substance: ADALIMUMAB
     Dosage: (40 MG/0.4 ML).
     Route: 058
     Dates: start: 20181024
  4. HUMIRA [Suspect]
     Active Substance: ADALIMUMAB
     Dosage: (40 MG/0.8 ML).
     Route: 058
     Dates: start: 2016
  5. UCERIS [Suspect]
     Active Substance: BUDESONIDE
     Indication: PRODUCT USED FOR UNKNOWN INDICATION
     Route: 065
     Dates: start: 201809, end: 2018
  6. HUMIRA [Suspect]
     Active Substance: ADALIMUMAB
     Dosage: (40 MG/0.8 ML, DAY 15)
     Route: 058
     Dates: start: 20180810, end: 20180810

REACTIONS (10)
  - Sinus disorder [Unknown]
  - Diarrhoea [Recovering/Resolving]
  - Nasopharyngitis [Unknown]
  - Postoperative adhesion [Unknown]
  - Fatigue [Recovering/Resolving]
  - Ill-defined disorder [Not Recovered/Not Resolved]
  - Nasal congestion [Unknown]
  - Abdominal adhesions [Recovering/Resolving]
  - Abdominal pain [Recovered/Resolved]
  - Asthenia [Recovering/Resolving]

NARRATIVE: CASE EVENT DATE: 2018
